FAERS Safety Report 8676103 (Version 2)
Quarter: 2012Q4

REPORT INFORMATION
  Report Type: 
  Country: BR (occurrence: BR)
  Receive Date: 20120720
  Receipt Date: 20121220
  Transmission Date: 20130627
  Serious: Yes (Life-Threatening, Hospitalization)
  Sender: FDA-Public Use
  Company Number: BR-BRISTOL-MYERS SQUIBB COMPANY-16761538

PATIENT
  Age: 62 Year
  Sex: Male
  Weight: 69 kg

DRUGS (2)
  1. ONGLYZA TABS [Suspect]
     Indication: DIABETES MELLITUS
     Dosage: ongoing
     Route: 048
     Dates: start: 2011
  2. INSULIN [Concomitant]
     Indication: DIABETES MELLITUS

REACTIONS (5)
  - Chest pain [Unknown]
  - Arthropathy [Unknown]
  - Postoperative wound infection [Recovering/Resolving]
  - Weight decreased [Unknown]
  - Blood creatinine increased [Unknown]
